FAERS Safety Report 7052852-7 (Version None)
Quarter: 2010Q4

REPORT INFORMATION
  Report Type: 
  Country: None (occurrence: None)
  Receive Date: 20101019
  Receipt Date: 20101006
  Transmission Date: 20110411
  Serious: Yes (Hospitalization)
  Sender: FDA-Public Use
  Company Number: DE-MYLANLABS-2009S1003548

PATIENT
  Age: 87 Year
  Sex: Male

DRUGS (9)
  1. BISOPROLOL [Suspect]
     Indication: CORONARY ARTERY DISEASE
     Route: 048
  2. DIGITOXIN [Suspect]
     Indication: TACHYARRHYTHMIA
     Dates: end: 20080602
  3. ALLOPURINOL [Concomitant]
     Indication: HYPERURICAEMIA
     Route: 048
     Dates: end: 20080602
  4. ENALAPRIL MALEATE [Concomitant]
     Indication: CARDIAC FAILURE
     Route: 048
  5. FALITHROM [Concomitant]
     Indication: ATRIAL FIBRILLATION
     Route: 048
     Dates: end: 20080602
  6. INSULIN ACTRAPID /00646001/ [Concomitant]
     Indication: CARDIAC FAILURE
     Route: 048
     Dates: start: 20070801
  7. INSULIN PROTAPHAN HUMAN [Concomitant]
     Indication: TYPE 2 DIABETES MELLITUS
     Route: 058
     Dates: start: 20070801
  8. LOCOL [Concomitant]
     Indication: HYPERCHOLESTEROLAEMIA
     Route: 048
  9. TORASEMIDE [Concomitant]
     Indication: CARDIAC FAILURE
     Route: 048
     Dates: end: 20080602

REACTIONS (2)
  - BRADYARRHYTHMIA [None]
  - NAUSEA [None]
